FAERS Safety Report 22400125 (Version 2)
Quarter: 2023Q2

REPORT INFORMATION
  Report Type: Spontaneous
  Country: US (occurrence: US)
  Receive Date: 20230602
  Receipt Date: 20230612
  Transmission Date: 20230721
  Serious: No
  Sender: FDA-Public Use
  Company Number: US-LUPIN PHARMACEUTICALS INC.-2023-04250

PATIENT

DRUGS (1)
  1. ALBUTEROL SULFATE [Suspect]
     Active Substance: ALBUTEROL SULFATE
     Indication: Pneumonia
     Dosage: UNK UNK, BID (2 PUFFS TWICE A DAY EVERY 6 HOURS)
     Dates: start: 202305

REACTIONS (3)
  - Wrong technique in product usage process [Unknown]
  - Product used for unknown indication [Unknown]
  - No adverse event [Unknown]
